FAERS Safety Report 5229326-9 (Version None)
Quarter: 2007Q1

REPORT INFORMATION
  Report Type: 
  Country: None (occurrence: None)
  Receive Date: 20070205
  Receipt Date: 20070126
  Transmission Date: 20070707
  Serious: Yes (Other)
  Sender: FDA-Public Use
  Company Number: JP-MERCK-0701USA03960

PATIENT
  Age: 52 Year
  Sex: Female

DRUGS (6)
  1. FOSAMAX [Suspect]
     Indication: OSTEOPOROSIS
     Route: 048
     Dates: start: 20070106, end: 20070114
  2. THYRADIN [Concomitant]
     Route: 048
  3. ROCALTROL [Concomitant]
     Indication: HYPOPARATHYROIDISM SECONDARY
     Route: 048
  4. CALCIUM LACTATE [Concomitant]
     Indication: HYPOPARATHYROIDISM SECONDARY
     Route: 048
  5. [THERAPY UNSPECIFIED] [Concomitant]
     Indication: CONSTIPATION
     Route: 048
  6. BENET [Concomitant]
     Indication: OSTEOPOROSIS
     Route: 048
     Dates: start: 20041014, end: 20070103

REACTIONS (1)
  - ANAPHYLACTIC REACTION [None]
